FAERS Safety Report 13833809 (Version 1)
Quarter: 2017Q3

REPORT INFORMATION
  Report Type: Spontaneous
  Country: US (occurrence: US)
  Receive Date: 20170804
  Receipt Date: 20170804
  Transmission Date: 20171127
  Serious: No
  Sender: FDA-Public Use
  Company Number: US-BRISTOL-MYERS SQUIBB COMPANY-BMS-2017-069035

PATIENT
  Sex: Male
  Weight: 77.11 kg

DRUGS (1)
  1. OPDIVO [Suspect]
     Active Substance: NIVOLUMAB
     Indication: PAPILLARY RENAL CELL CARCINOMA
     Dosage: UNK UNK, Q2WK
     Route: 042
     Dates: start: 20170622

REACTIONS (5)
  - Chills [Unknown]
  - Somnolence [Unknown]
  - Confusional state [Unknown]
  - Hiccups [Unknown]
  - Tremor [Unknown]
